FAERS Safety Report 4823984-6 (Version None)
Quarter: 2005Q4

REPORT INFORMATION
  Report Type: 
  Country: None (occurrence: None)
  Receive Date: 20051109
  Receipt Date: 20051031
  Transmission Date: 20060501
  Serious: Yes (Other)
  Sender: FDA-Public Use
  Company Number: US-JNJFOC-20051100352

PATIENT
  Sex: Female

DRUGS (6)
  1. REMICADE [Suspect]
     Dosage: FIRST INFUSION
     Route: 042
  2. SINGULAIR [Concomitant]
  3. CELEXA [Concomitant]
  4. ALLEGRA [Concomitant]
  5. ZYRTEC [Concomitant]
  6. EPXICON CREAM [Concomitant]

REACTIONS (3)
  - EATING DISORDER [None]
  - HAEMATEMESIS [None]
  - NAUSEA [None]
